FAERS Safety Report 13126072 (Version 1)
Quarter: 2017Q1

REPORT INFORMATION
  Report Type: Spontaneous
  Country: US (occurrence: US)
  Receive Date: 20170118
  Receipt Date: 20170118
  Transmission Date: 20170428
  Serious: Yes (Hospitalization)
  Sender: FDA-Public Use
  Company Number: US-UNITED THERAPEUTICS-UNT-2016-019656

PATIENT
  Sex: Male

DRUGS (1)
  1. REMODULIN [Suspect]
     Active Substance: TREPROSTINIL
     Indication: PULMONARY ARTERIAL HYPERTENSION
     Dosage: 0.026 ?G/KG, CONTINUING
     Route: 058
     Dates: start: 201610

REACTIONS (5)
  - Weight increased [Unknown]
  - Condition aggravated [Unknown]
  - Abdominal pain [Unknown]
  - Oedema peripheral [Unknown]
  - Infusion site pain [Unknown]

NARRATIVE: CASE EVENT DATE: 201612
